FAERS Safety Report 4738731-6 (Version None)
Quarter: 2005Q3

REPORT INFORMATION
  Report Type: 
  Country: None (occurrence: None)
  Receive Date: 20050804
  Receipt Date: 20050720
  Transmission Date: 20060218
  Serious: Yes (Hospitalization)
  Sender: FDA-Public Use
  Company Number: 200505375

PATIENT
  Age: 10 Year
  Sex: Female
  Weight: 33 kg

DRUGS (1)
  1. ALESION (EPINASTINE) [Suspect]
     Indication: PRURITUS
     Dosage: 8 MG QD PO
     Route: 048
     Dates: start: 20050513, end: 20050515

REACTIONS (1)
  - ERYTHEMA MULTIFORME [None]
